FAERS Safety Report 14975837 (Version 1)
Quarter: 2018Q2

REPORT INFORMATION
  Report Type: Spontaneous
  Country: US (occurrence: US)
  Receive Date: 20180605
  Receipt Date: 20180605
  Transmission Date: 20180711
  Serious: No
  Sender: FDA-Public Use
  Company Number: US-ROCHE-2022910

PATIENT
  Sex: Female
  Weight: 65.83 kg

DRUGS (2)
  1. ACTEMRA [Suspect]
     Active Substance: TOCILIZUMAB
     Indication: RHEUMATOID ARTHRITIS
     Dosage: NO
     Route: 065
     Dates: start: 201706
  2. ACTEMRA [Suspect]
     Active Substance: TOCILIZUMAB
     Dosage: YES
     Route: 065

REACTIONS (3)
  - Gastroenteritis viral [Unknown]
  - Product storage error [Unknown]
  - Maternal exposure during pregnancy [Unknown]
